FAERS Safety Report 10089127 (Version 1)
Quarter: 2014Q2

REPORT INFORMATION
  Report Type: Spontaneous
  Country: US (occurrence: US)
  Receive Date: 20140421
  Receipt Date: 20140421
  Transmission Date: 20141212
  Serious: No
  Sender: FDA-Public Use
  Company Number: US-B.I. PHARMACEUTICALS,INC./RIDGEFIELD-2014-BI-16498BP

PATIENT
  Age: 74 Year
  Sex: Male
  Weight: 82 kg

DRUGS (1)
  1. SPIRIVA [Suspect]
     Indication: HYPERSENSITIVITY
     Dosage: 18 MCG
     Route: 055
     Dates: start: 201308

REACTIONS (1)
  - Off label use [Unknown]
